FAERS Safety Report 5755545-9 (Version None)
Quarter: 2008Q2

REPORT INFORMATION
  Report Type: 
  Country: None (occurrence: None)
  Receive Date: 20080602
  Receipt Date: 20080527
  Transmission Date: 20081010
  Serious: Yes (Other)
  Sender: FDA-Public Use
  Company Number: US-JNJFOC-20080505465

PATIENT
  Age: 14 Year
  Sex: Female
  Weight: 56.7 kg

DRUGS (2)
  1. RISPERDAL [Suspect]
     Indication: POST-TRAUMATIC STRESS DISORDER
  2. ABILIFY [Suspect]
     Indication: DRUG USE FOR UNKNOWN INDICATION

REACTIONS (11)
  - ACTIVITIES OF DAILY LIVING IMPAIRED [None]
  - BRAIN MASS [None]
  - DEMENTIA [None]
  - EATING DISORDER [None]
  - ENCEPHALOPATHY [None]
  - EXTRAPYRAMIDAL DISORDER [None]
  - HEADACHE [None]
  - HYPOTENSION [None]
  - PARKINSONISM [None]
  - SLEEP DISORDER [None]
  - TREMOR [None]
